FAERS Safety Report 5776917-2 (Version None)
Quarter: 2008Q2

REPORT INFORMATION
  Report Type: 
  Country: None (occurrence: None)
  Receive Date: 20080618
  Receipt Date: 20080609
  Transmission Date: 20081010
  Serious: Yes (Hospitalization)
  Sender: FDA-Public Use
  Company Number: B0509199A

PATIENT
  Age: 61 Year
  Sex: Female

DRUGS (2)
  1. AUGMENTIN '125' [Suspect]
     Route: 048
     Dates: start: 20071223, end: 20071224
  2. CORTICOID [Concomitant]
     Indication: ECZEMA
     Route: 061

REACTIONS (3)
  - PRURITUS [None]
  - RASH MACULAR [None]
  - TOXIC SKIN ERUPTION [None]
